FAERS Safety Report 7294429-4 (Version None)
Quarter: 2011Q1

REPORT INFORMATION
  Report Type: 
  Country: None (occurrence: None)
  Receive Date: 20110215
  Receipt Date: 20110209
  Transmission Date: 20110831
  Serious: No
  Sender: FDA-Public Use
  Company Number: FR-BRISTOL-MYERS SQUIBB COMPANY-15516040

PATIENT
  Age: 51 Year
  Sex: Male

DRUGS (1)
  1. FUNGIZONE [Suspect]
     Dosage: 2NDINF:27JAN11,3INF:28JAN11
     Route: 042
     Dates: start: 20110126

REACTIONS (1)
  - DRUG ADMINISTRATION ERROR [None]
